FAERS Safety Report 8281773-7 (Version None)
Quarter: 2012Q2

REPORT INFORMATION
  Report Type: 
  Country: None (occurrence: None)
  Receive Date: 20120413
  Receipt Date: 20120405
  Transmission Date: 20120825
  Serious: Yes (Hospitalization)
  Sender: FDA-Public Use
  Company Number: TW-JNJFOC-20120310054

PATIENT
  Age: 66 Year
  Sex: Female

DRUGS (2)
  1. ULTRACET [Suspect]
     Indication: PAIN MANAGEMENT
     Route: 065
  2. DICLOFENAC SODIUM [Suspect]
     Indication: PAIN MANAGEMENT
     Dosage: 25-JUN
     Route: 065

REACTIONS (1)
  - DELIRIUM [None]
